FAERS Safety Report 9292275 (Version 2)
Quarter: 2013Q3

REPORT INFORMATION
  Report Type: Spontaneous
  Country: FR (occurrence: FR)
  Receive Date: 20130516
  Receipt Date: 20130708
  Transmission Date: 20140515
  Serious: Yes (Death)
  Sender: FDA-Public Use
  Company Number: FR-NOVOPROD-377732

PATIENT
  Age: 77 Year
  Sex: Male

DRUGS (11)
  1. NOVONORM [Suspect]
     Indication: PRODUCT USED FOR UNKNOWN INDICATION
     Dosage: UNKNOWN
     Route: 065
     Dates: end: 20130417
  2. STAGID [Suspect]
     Indication: PRODUCT USED FOR UNKNOWN INDICATION
     Dosage: UNKNOWN
     Route: 065
     Dates: end: 20130417
  3. VICTOZA [Concomitant]
     Indication: PRODUCT USED FOR UNKNOWN INDICATION
  4. CRESTOR [Concomitant]
     Dates: start: 20121001
  5. PROCORALAN [Concomitant]
  6. GLUCOR [Concomitant]
  7. FOZITEC                            /00915301/ [Concomitant]
  8. LASILIX                            /00032601/ [Concomitant]
  9. TRINIPATCH [Concomitant]
  10. ZOPICLONE [Concomitant]
  11. SERETIDE [Concomitant]

REACTIONS (6)
  - Polyarthritis [Fatal]
  - Pyrexia [Fatal]
  - Myalgia [Fatal]
  - Neutrophilia [Fatal]
  - C-reactive protein increased [Fatal]
  - Neuritis [Unknown]
